FAERS Safety Report 11427360 (Version 1)
Quarter: 2015Q3

REPORT INFORMATION
  Report Type: Spontaneous
  Country: US (occurrence: None)
  Receive Date: 20150826
  Receipt Date: 20150826
  Transmission Date: 20151125
  Serious: Yes (Hospitalization, Other)
  Sender: FDA-Public Use
  Company Number: 2015MYN000043

PATIENT
  Age: 21 Year
  Sex: Male

DRUGS (3)
  1. BUPRENORPHINE HCL AND NALOXONE HCL [Concomitant]
     Active Substance: BUPRENORPHINE\NALOXONE
  2. OXYCODONE HYDROCHLORIDE (OXYCODONE HYDROCHLORIDE) UNKNOWN [Suspect]
     Active Substance: OXYCODONE HYDROCHLORIDE
     Indication: PRODUCT USED FOR UNKNOWN INDICATION
     Dates: start: 2013
  3. OXYMORPHONE [Concomitant]
     Active Substance: OXYMORPHONE

REACTIONS (22)
  - Rhabdomyolysis [None]
  - White blood cell count increased [None]
  - Respiratory rate increased [None]
  - Delirium [None]
  - Piloerection [None]
  - Heart rate increased [None]
  - Disorientation [None]
  - Nausea [None]
  - Akathisia [None]
  - Pneumomediastinum [None]
  - Oesophageal rupture [None]
  - Acute kidney injury [None]
  - Hyperhidrosis [None]
  - Diarrhoea [None]
  - Vomiting [None]
  - Dyspnoea [None]
  - Drug withdrawal syndrome [None]
  - Dystonia [None]
  - Hallucinations, mixed [None]
  - Chills [None]
  - Pharyngeal oedema [None]
  - Anxiety [None]
